FAERS Safety Report 7343116-2 (Version None)
Quarter: 2011Q1

REPORT INFORMATION
  Report Type: 
  Country: None (occurrence: None)
  Receive Date: 20110302
  Receipt Date: 20110225
  Transmission Date: 20110831
  Serious: Yes (Death)
  Sender: FDA-Public Use
  Company Number: ZYD-11-AE-015

PATIENT
  Age: 66 Year
  Sex: Female

DRUGS (1)
  1. ANASTROZOLE [Suspect]
     Indication: BREAST CANCER
     Dosage: 1MG - DAILY
     Dates: start: 20100721, end: 20101017

REACTIONS (2)
  - ROAD TRAFFIC ACCIDENT [None]
  - DISTURBANCE IN ATTENTION [None]
